FAERS Safety Report 18626995 (Version 1)
Quarter: 2020Q4

REPORT INFORMATION
  Report Type: Spontaneous
  Country: PL (occurrence: PL)
  Receive Date: 20201217
  Receipt Date: 20201217
  Transmission Date: 20210114
  Serious: Yes (Death, Other)
  Sender: FDA-Public Use
  Company Number: PL-SUN PHARMACEUTICAL INDUSTRIES LTD-2020R1-270171

PATIENT
  Age: 75 Year
  Sex: Female

DRUGS (1)
  1. METFORMIN [Suspect]
     Active Substance: METFORMIN HYDROCHLORIDE
     Indication: TYPE 2 DIABETES MELLITUS
     Dosage: 3 GRAM, DAILY
     Route: 065

REACTIONS (4)
  - Lactic acidosis [Unknown]
  - Acute kidney injury [Unknown]
  - Cardiogenic shock [Fatal]
  - Septic shock [Fatal]
